FAERS Safety Report 20022173 (Version 1)
Quarter: 2021Q4

REPORT INFORMATION
  Report Type: Spontaneous
  Country: US (occurrence: US)
  Receive Date: 20211102
  Receipt Date: 20211102
  Transmission Date: 20220304
  Serious: No
  Sender: FDA-Public Use
  Company Number: US-JNJFOC-20211034014

PATIENT
  Age: 3 Year

DRUGS (1)
  1. PEPCID AC [Suspect]
     Active Substance: FAMOTIDINE
     Indication: Accidental exposure to product
     Dosage: ABOUT 5-8 PIECES
     Route: 048

REACTIONS (2)
  - Accidental exposure to product by child [Unknown]
  - Accidental overdose [Unknown]
